FAERS Safety Report 5729519-8 (Version None)
Quarter: 2008Q2

REPORT INFORMATION
  Report Type: 
  Country: None (occurrence: None)
  Receive Date: 20080501
  Receipt Date: 20080422
  Transmission Date: 20081010
  Serious: Yes (Hospitalization, Other)
  Sender: FDA-Public Use
  Company Number: 163-21880-08010470

PATIENT
  Age: 71 Year
  Sex: Male

DRUGS (7)
  1. REVLIMID [Suspect]
     Indication: MULTIPLE MYELOMA
     Dosage: 25 MG, QD X 21 DAYS, ORAL; 15 MG, QD X 21 DAYS, ORAL
     Route: 048
     Dates: start: 20070803, end: 20071030
  2. REVLIMID [Suspect]
     Indication: MULTIPLE MYELOMA
     Dosage: 25 MG, QD X 21 DAYS, ORAL; 15 MG, QD X 21 DAYS, ORAL
     Route: 048
     Dates: start: 20070712
  3. ERYTHROPOETIN (EPOETIN ALFA) [Concomitant]
  4. ASPIRIN [Concomitant]
  5. VELCADE [Concomitant]
  6. DEXAMETHASONE TAB [Concomitant]
  7. MELPHALAN (MELPHALAN) [Concomitant]

REACTIONS (12)
  - ANAEMIA [None]
  - CARDIAC FAILURE [None]
  - CARDIOMEGALY [None]
  - DISEASE PROGRESSION [None]
  - HYPERCALCAEMIA [None]
  - HYPERTENSION [None]
  - HYPERURICAEMIA [None]
  - MULTIPLE MYELOMA [None]
  - PLEURAL EFFUSION [None]
  - PNEUMONIA [None]
  - RENAL FAILURE [None]
  - TRICUSPID VALVE INCOMPETENCE [None]
